FAERS Safety Report 14818426 (Version 1)
Quarter: 2018Q2

REPORT INFORMATION
  Report Type: Spontaneous
  Country: GB (occurrence: GB)
  Receive Date: 20180427
  Receipt Date: 20180427
  Transmission Date: 20180711
  Serious: Yes (Other)
  Sender: FDA-Public Use
  Company Number: GB-TEVA-2018-GB-887227

PATIENT
  Age: 73 Year
  Sex: Male
  Weight: 92 kg

DRUGS (2)
  1. INDAPAMIDE. [Concomitant]
     Active Substance: INDAPAMIDE
     Dosage: 2.5 MILLIGRAM DAILY;
     Route: 065
     Dates: start: 20180223
  2. LISINOPRIL. [Suspect]
     Active Substance: LISINOPRIL
     Dosage: 5MG/5ML

REACTIONS (1)
  - Ischaemic nephropathy [Recovered/Resolved]

NARRATIVE: CASE EVENT DATE: 20171108
